FAERS Safety Report 25737573 (Version 1)
Quarter: 2025Q3

REPORT INFORMATION
  Report Type: Spontaneous
  Country: EU (occurrence: EU)
  Receive Date: 20250828
  Receipt Date: 20250828
  Transmission Date: 20251021
  Serious: Yes (Other)
  Sender: SANDOZ
  Company Number: EU-002147023-NVSC2019IT003076

PATIENT
  Age: 63 Year
  Sex: Male

DRUGS (5)
  1. DECADRON (DEXAMETHASONE SODIUM PHOSPHATE) [Suspect]
     Active Substance: DEXAMETHASONE SODIUM PHOSPHATE
     Indication: Serpiginous choroiditis
  2. MYCOPHENOLATE MOFETIL [Suspect]
     Active Substance: MYCOPHENOLATE MOFETIL
     Indication: Serpiginous choroiditis
     Dosage: 1.5 G, QD
     Route: 062
  3. MYCOPHENOLATE MOFETIL [Suspect]
     Active Substance: MYCOPHENOLATE MOFETIL
     Indication: Immunosuppressant drug therapy
  4. PREDNISONE [Suspect]
     Active Substance: PREDNISONE
     Indication: Serpiginous choroiditis
     Dosage: 15 MG, QD
     Route: 062
  5. PREDNISONE [Suspect]
     Active Substance: PREDNISONE
     Dosage: 5 MG, QD
     Route: 062

REACTIONS (4)
  - Serpiginous choroiditis [Unknown]
  - Osteoporosis [Unknown]
  - Cataract [Unknown]
  - Product use in unapproved indication [Unknown]
